FAERS Safety Report 7309005-4 (Version None)
Quarter: 2011Q1

REPORT INFORMATION
  Report Type: 
  Country: None (occurrence: None)
  Receive Date: 20110223
  Receipt Date: 20110208
  Transmission Date: 20110831
  Serious: Yes (Hospitalization, Other)
  Sender: FDA-Public Use
  Company Number: US-BAYER-2011-016721

PATIENT
  Sex: Female
  Weight: 63.492 kg

DRUGS (3)
  1. YAZ [Suspect]
     Indication: ORAL CONTRACEPTION
     Dosage: UNK
     Dates: start: 20080101, end: 20091001
  2. PROZAC [Concomitant]
     Indication: PRODUCT USED FOR UNKNOWN INDICATION
  3. YAZ [Suspect]
     Indication: PREMENSTRUAL SYNDROME

REACTIONS (13)
  - DIARRHOEA [None]
  - GALLBLADDER CHOLESTEROLOSIS [None]
  - ABDOMINAL PAIN UPPER [None]
  - NAUSEA [None]
  - CHANGE OF BOWEL HABIT [None]
  - VOMITING [None]
  - VIRAL INFECTION [None]
  - HAEMATOCHEZIA [None]
  - ABDOMINAL DISTENSION [None]
  - CHOLECYSTITIS CHRONIC [None]
  - IMMUNE SYSTEM DISORDER [None]
  - WEIGHT DECREASED [None]
  - ABDOMINAL PAIN [None]
